FAERS Safety Report 23960623 (Version 1)
Quarter: 2024Q2

REPORT INFORMATION
  Report Type: Spontaneous
  Country: PK (occurrence: PK)
  Receive Date: 20240611
  Receipt Date: 20240611
  Transmission Date: 20240716
  Serious: Yes (Other)
  Sender: FDA-Public Use
  Company Number: PK-Accord-428579

PATIENT
  Age: 15 Year
  Sex: Male

DRUGS (2)
  1. ITRACONAZOLE [Interacting]
     Active Substance: ITRACONAZOLE
     Indication: Antifungal prophylaxis
  2. TRETINOIN [Interacting]
     Active Substance: TRETINOIN
     Indication: Acute promyelocytic leukaemia

REACTIONS (4)
  - Drug interaction [Unknown]
  - Drug level increased [Unknown]
  - Scrotal ulcer [Unknown]
  - Fournier^s gangrene [Unknown]
